FAERS Safety Report 14772002 (Version 1)
Quarter: 2018Q2

REPORT INFORMATION
  Report Type: Spontaneous
  Country: US (occurrence: US)
  Receive Date: 20180417
  Receipt Date: 20180417
  Transmission Date: 20180711
  Serious: No
  Sender: FDA-Public Use
  Company Number: US-009507513-1804USA002012

PATIENT
  Sex: Female
  Weight: 72 kg

DRUGS (1)
  1. CUBICIN RF [Suspect]
     Active Substance: DAPTOMYCIN
     Indication: ABSCESS LIMB
     Dosage: 450 MG, QD
     Route: 042
     Dates: start: 20180329

REACTIONS (2)
  - Product storage error [Unknown]
  - No adverse event [Unknown]
